FAERS Safety Report 17294180 (Version 1)
Quarter: 2020Q1

REPORT INFORMATION
  Report Type: Spontaneous
  Country: US (occurrence: US)
  Receive Date: 20200120
  Receipt Date: 20200120
  Transmission Date: 20200409
  Serious: No
  Sender: FDA-Public Use
  Company Number: None

PATIENT
  Age: 32 Year
  Sex: Female
  Weight: 71.1 kg

DRUGS (6)
  1. DULOXETINE DELAYED RELEASE CAPSULES USP [Suspect]
     Active Substance: DULOXETINE
     Indication: POST HERPETIC NEURALGIA
     Dosage: ?          QUANTITY:1 CAPSULE(S);?
     Route: 048
     Dates: start: 20191001
  2. XYZAL [Concomitant]
     Active Substance: LEVOCETIRIZINE DIHYDROCHLORIDE
  3. MIRENA [Concomitant]
     Active Substance: LEVONORGESTREL
  4. VYVANSE [Concomitant]
     Active Substance: LISDEXAMFETAMINE DIMESYLATE
  5. LEVOTHYROXINE. [Concomitant]
     Active Substance: LEVOTHYROXINE
  6. CLOMIPRAMINE [Concomitant]
     Active Substance: CLOMIPRAMINE

REACTIONS (3)
  - Drug ineffective [None]
  - Product substitution issue [None]
  - Neuralgia [None]

NARRATIVE: CASE EVENT DATE: 20191001
